FAERS Safety Report 25089538 (Version 2)
Quarter: 2025Q2

REPORT INFORMATION
  Report Type: Spontaneous
  Country: MY (occurrence: MY)
  Receive Date: 20250318
  Receipt Date: 20250401
  Transmission Date: 20250716
  Serious: Yes (Death, Other)
  Sender: CSL BEHRING
  Company Number: MY-BEH-2025198621

PATIENT

DRUGS (4)
  1. HUMAN IMMUNOGLOBULIN G [Suspect]
     Active Substance: HUMAN IMMUNOGLOBULIN G
     Indication: Long QT syndrome congenital
     Route: 064
  2. MAGNESIUM SULFATE [Suspect]
     Active Substance: MAGNESIUM SULFATE
     Indication: Long QT syndrome congenital
     Route: 064
  3. PROPRANOLOL [Suspect]
     Active Substance: PROPRANOLOL HYDROCHLORIDE
     Indication: Long QT syndrome congenital
     Route: 064
  4. HYDROXYCHLOROQUINE [Suspect]
     Active Substance: HYDROXYCHLOROQUINE
     Indication: Long QT syndrome congenital
     Route: 064

REACTIONS (5)
  - Long QT syndrome congenital [Fatal]
  - Foetal heart rate decreased [Fatal]
  - Drug ineffective for unapproved indication [Fatal]
  - Off label use [Unknown]
  - Foetal exposure during pregnancy [Unknown]
